FAERS Safety Report 12453104 (Version 1)
Quarter: 2016Q2

REPORT INFORMATION
  Report Type: Spontaneous
  Country: BE (occurrence: BE)
  Receive Date: 20160609
  Receipt Date: 20160609
  Transmission Date: 20160815
  Serious: Yes (Other)
  Sender: FDA-Public Use
  Company Number: BE-TEVA-665567ISR

PATIENT
  Age: 24 Year
  Sex: Male

DRUGS (5)
  1. PALIPERIDONE. [Suspect]
     Active Substance: PALIPERIDONE
     Indication: SCHIZOPHRENIA
     Dosage: 6 MILLIGRAM DAILY;
     Route: 048
     Dates: start: 20141223, end: 20150107
  2. PALIPERIDONE. [Suspect]
     Active Substance: PALIPERIDONE
     Indication: SCHIZOPHRENIA
     Route: 065
     Dates: start: 20150108, end: 20150108
  3. PALIPERIDONE. [Suspect]
     Active Substance: PALIPERIDONE
     Route: 065
     Dates: start: 20150115, end: 20150115
  4. OLANZAPINE. [Suspect]
     Active Substance: OLANZAPINE
     Indication: SCHIZOPHRENIA
     Dosage: 10 MILLIGRAM DAILY;
     Route: 048
  5. DIPOTASSIUM CLORAZEPATE [Concomitant]
     Active Substance: CLORAZEPATE DIPOTASSIUM
     Indication: SCHIZOPHRENIA
     Dosage: 5 MILLIGRAM DAILY;
     Route: 048

REACTIONS (3)
  - Septic shock [Unknown]
  - Diarrhoea [Unknown]
  - Toxic epidermal necrolysis [Unknown]
